FAERS Safety Report 10218489 (Version 1)
Quarter: 2014Q2

REPORT INFORMATION
  Report Type: Report from Study
  Country: TW (occurrence: TW)
  Receive Date: 20140605
  Receipt Date: 20140605
  Transmission Date: 20141212
  Serious: Yes (Other)
  Sender: FDA-Public Use
  Company Number: TW-ROCHE-1412767

PATIENT
  Age: 87 Year
  Sex: Female

DRUGS (2)
  1. CEFTRIAXONE [Suspect]
     Indication: PNEUMONIA
     Route: 065
  2. MOXIFLOXACIN [Suspect]
     Indication: PNEUMONIA
     Route: 065

REACTIONS (1)
  - Drug reaction with eosinophilia and systemic symptoms [Unknown]
